FAERS Safety Report 18653276 (Version 1)
Quarter: 2020Q4

REPORT INFORMATION
  Report Type: Spontaneous
  Country: US (occurrence: US)
  Receive Date: 20201223
  Receipt Date: 20201223
  Transmission Date: 20210114
  Serious: Yes (Life-Threatening, Hospitalization, Other)
  Sender: FDA-Public Use
  Company Number: US-GLAXOSMITHKLINE-US2020GSK253499

PATIENT
  Age: 19 Year
  Sex: Female
  Weight: 67 kg

DRUGS (1)
  1. BUPROPION. [Suspect]
     Active Substance: BUPROPION
     Indication: DEPRESSION
     Dosage: UNK (53 TABLETS)
     Route: 048

REACTIONS (18)
  - Unresponsive to stimuli [Recovered/Resolved]
  - Delirium [Recovered/Resolved]
  - Seizure [Recovered/Resolved]
  - Suicide attempt [Unknown]
  - Hallucination, visual [Recovered/Resolved]
  - Hyperreflexia [Recovered/Resolved]
  - Sinus tachycardia [Recovered/Resolved]
  - Mental status changes [Recovered/Resolved]
  - Agitation [Not Recovered/Not Resolved]
  - Clonus [Recovered/Resolved]
  - Intentional overdose [Unknown]
  - Hyperthermia [Recovered/Resolved]
  - Supraventricular tachycardia [Recovered/Resolved]
  - Nervous system disorder [Recovered/Resolved]
  - Serotonin syndrome [Recovered/Resolved]
  - Pain [Recovered/Resolved]
  - Disorientation [Recovered/Resolved]
  - Generalised tonic-clonic seizure [Recovered/Resolved]
